FAERS Safety Report 18443619 (Version 3)
Quarter: 2021Q1

REPORT INFORMATION
  Report Type: Spontaneous
  Country: US (occurrence: US)
  Receive Date: 20201029
  Receipt Date: 20210125
  Transmission Date: 20210419
  Serious: No
  Sender: FDA-Public Use
  Company Number: US-TAKEDA-2020TUS045044

PATIENT
  Age: 65 Year
  Sex: Female

DRUGS (6)
  1. CALCIUM [Concomitant]
     Active Substance: CALCIUM
     Dosage: UNK
  2. VITAMIN D3 [Concomitant]
     Active Substance: CHOLECALCIFEROL
     Dosage: UNK
  3. NINLARO [Suspect]
     Active Substance: IXAZOMIB CITRATE
     Indication: PLASMA CELL MYELOMA
     Dosage: 3 MILLIGRAM
     Route: 048
     Dates: start: 20200316
  4. NINLARO [Suspect]
     Active Substance: IXAZOMIB CITRATE
     Dosage: 2.3 MILLIGRAM
     Route: 048
  5. REVLIMID [Concomitant]
     Active Substance: LENALIDOMIDE
     Dosage: UNK
  6. ASPIRIN. [Concomitant]
     Active Substance: ASPIRIN
     Dosage: UNK

REACTIONS (4)
  - Dyspepsia [Unknown]
  - Abdominal discomfort [Unknown]
  - Vomiting [Unknown]
  - Off label use [Unknown]

NARRATIVE: CASE EVENT DATE: 20201001
